FAERS Safety Report 14998632 (Version 2)
Quarter: 2018Q3

REPORT INFORMATION
  Report Type: Spontaneous
  Country: JP (occurrence: JP)
  Receive Date: 20180612
  Receipt Date: 20180726
  Transmission Date: 20181010
  Serious: Yes (Hospitalization)
  Sender: FDA-Public Use
  Company Number: JP-AMGEN-JPNSP2018078311

PATIENT
  Age: 68 Year
  Sex: Female

DRUGS (10)
  1. PARSABIV [Suspect]
     Active Substance: ETELCALCETIDE HYDROCHLORIDE
     Indication: HYPERPARATHYROIDISM SECONDARY
     Dosage: 7.5 MG, 3 TIMES/WK
     Route: 042
     Dates: start: 20180306, end: 20180526
  2. MAINTATE [Concomitant]
     Active Substance: BISOPROLOL FUMARATE
  3. PARIET [Concomitant]
     Active Substance: RABEPRAZOLE SODIUM
  4. KIKLIN [Concomitant]
     Active Substance: BIXALOMER
  5. PRECIPITATED CALCIUM CARBONATE [Concomitant]
     Active Substance: CALCIUM CARBONATE
  6. YOKUKANSAN [Concomitant]
     Active Substance: HERBALS
     Dosage: UNK
     Dates: start: 20180322
  7. PARSABIV [Suspect]
     Active Substance: ETELCALCETIDE HYDROCHLORIDE
     Dosage: 5 MG, 3 TIMES/WK
     Route: 042
     Dates: start: 20180527
  8. DAIKENCHUTO [Concomitant]
     Active Substance: HERBALS
  9. RUEFRIEN [Concomitant]
     Active Substance: GLUTAMINE\SODIUM GUALENATE
  10. TICLOPIDINE HYDROCHLORIDE. [Concomitant]
     Active Substance: TICLOPIDINE HYDROCHLORIDE

REACTIONS (1)
  - Shunt malfunction [Recovered/Resolved]

NARRATIVE: CASE EVENT DATE: 20180527
